FAERS Safety Report 9070835 (Version 1)
Quarter: 2013Q1

REPORT INFORMATION
  Report Type: Spontaneous
  Country: AU (occurrence: AU)
  Receive Date: 20130129
  Receipt Date: 20130129
  Transmission Date: 20140127
  Serious: Yes (Hospitalization, Disabling)
  Sender: FDA-Public Use
  Company Number: AU-MYLANLABS-2013S1001182

PATIENT
  Age: 17 Year
  Sex: Male

DRUGS (2)
  1. ISOTRETINOIN [Suspect]
     Indication: ACNE
     Dosage: 20 MG/DAY
     Route: 065
  2. ISOTRETINOIN [Suspect]
     Indication: ACNE
     Dosage: 40 MG/DAY
     Route: 065

REACTIONS (6)
  - Sacroiliitis [Recovered/Resolved]
  - Myalgia [Recovered/Resolved]
  - Musculoskeletal chest pain [Recovered/Resolved]
  - Tendonitis [Recovered/Resolved]
  - Malaise [Recovered/Resolved]
  - Pyrexia [Recovered/Resolved]
